FAERS Safety Report 22070102 (Version 2)
Quarter: 2023Q1

REPORT INFORMATION
  Report Type: Report from Study
  Country: US (occurrence: US)
  Receive Date: 20230307
  Receipt Date: 20230327
  Transmission Date: 20230417
  Serious: Yes (Hospitalization)
  Sender: FDA-Public Use
  Company Number: US-ABBVIE-4329632

PATIENT
  Age: 75 Year
  Sex: Female

DRUGS (1)
  1. IMBRUVICA [Suspect]
     Active Substance: IBRUTINIB
     Indication: Non-Hodgkin^s lymphoma
     Route: 048
     Dates: start: 20220812

REACTIONS (10)
  - Hypertension [Recovering/Resolving]
  - Blood potassium decreased [Unknown]
  - Lower limb fracture [Unknown]
  - Arthritis [Not Recovered/Not Resolved]
  - Poor peripheral circulation [Unknown]
  - Diabetes mellitus [Unknown]
  - Dementia [Unknown]
  - Mass [Unknown]
  - Impaired healing [Unknown]
  - Weight increased [Unknown]

NARRATIVE: CASE EVENT DATE: 20230301
